FAERS Safety Report 23452971 (Version 1)
Quarter: 2024Q1

REPORT INFORMATION
  Report Type: Spontaneous
  Country: US (occurrence: US)
  Receive Date: 20240129
  Receipt Date: 20240129
  Transmission Date: 20240410
  Serious: No
  Sender: FDA-Public Use
  Company Number: US-PFIZER INC-202400026277

PATIENT
  Age: 77 Year
  Sex: Female

DRUGS (1)
  1. IBRANCE [Suspect]
     Active Substance: PALBOCICLIB
     Dosage: 100 MG, CYCLIC (TAKE 1 CAPSULE ON DAYS 1 THROUGH 21 THEN OFF FOR 7 DAYS)
     Dates: start: 20230415

REACTIONS (3)
  - Full blood count decreased [Not Recovered/Not Resolved]
  - Stress [Unknown]
  - Hair texture abnormal [Unknown]
